FAERS Safety Report 6769552-0 (Version None)
Quarter: 2010Q2

REPORT INFORMATION
  Report Type: 
  Country: None (occurrence: None)
  Receive Date: 20100615
  Receipt Date: 20100603
  Transmission Date: 20101027
  Serious: Yes (Hospitalization)
  Sender: FDA-Public Use
  Company Number: PHHY2010US36325

PATIENT
  Sex: Female
  Weight: 96 kg

DRUGS (1)
  1. EXJADE [Suspect]
     Indication: HAEMOLYTIC ANAEMIA
     Dosage: 2000 MG, QD
     Route: 048
     Dates: start: 20061222, end: 20100127

REACTIONS (1)
  - CEREBROVASCULAR ACCIDENT [None]
